FAERS Safety Report 5247512-9 (Version None)
Quarter: 2007Q1

REPORT INFORMATION
  Report Type: 
  Country: None (occurrence: None)
  Receive Date: 20070227
  Receipt Date: 20070216
  Transmission Date: 20070707
  Serious: Yes (Hospitalization)
  Sender: FDA-Public Use
  Company Number: ES-ELI_LILLY_AND_COMPANY-ES200702003328

PATIENT
  Age: 77 Year
  Sex: Female

DRUGS (3)
  1. FORTEO [Suspect]
     Indication: OSTEOPOROSIS
     Dosage: 20 UG, DAILY (1/D)
     Route: 058
     Dates: start: 20051001
  2. VACCINES [Concomitant]
     Indication: HYPERSENSITIVITY
  3. VITAMINS [Concomitant]
     Indication: MACULAR DEGENERATION

REACTIONS (2)
  - ASTHMA [None]
  - LUNG INFECTION [None]
